FAERS Safety Report 9246132 (Version 1)
Quarter: 2013Q2

REPORT INFORMATION
  Report Type: Spontaneous
  Country: US (occurrence: US)
  Receive Date: 20130422
  Receipt Date: 20130422
  Transmission Date: 20140414
  Serious: No
  Sender: FDA-Public Use
  Company Number: US-PFIZER INC-2013119766

PATIENT
  Sex: Male

DRUGS (2)
  1. XANAX XR [Suspect]
     Dosage: UNK
  2. XANAX [Suspect]
     Dosage: UNK

REACTIONS (4)
  - Psychomotor hyperactivity [Unknown]
  - Somnolence [Unknown]
  - Malaise [Unknown]
  - Drug effect incomplete [Unknown]
